FAERS Safety Report 9148630 (Version 1)
Quarter: 2013Q1

REPORT INFORMATION
  Report Type: Spontaneous
  Country: GR (occurrence: GR)
  Receive Date: 20130308
  Receipt Date: 20130308
  Transmission Date: 20140127
  Serious: Yes (Other)
  Sender: FDA-Public Use
  Company Number: GR-JNJFOC-20130300384

PATIENT
  Sex: Female

DRUGS (2)
  1. REMICADE [Suspect]
     Indication: ANKYLOSING SPONDYLITIS
     Dosage: APPROXIMATELY 3 YEARS AGO WAS UNDER INFLIXIMAB ADMINISTRATION
     Route: 042
  2. SALOPYRINE [Suspect]
     Indication: PRODUCT USED FOR UNKNOWN INDICATION
     Route: 065

REACTIONS (3)
  - Raynaud^s phenomenon [Unknown]
  - Skin ulcer [Unknown]
  - Systemic lupus erythematosus [Unknown]
